FAERS Safety Report 24278550 (Version 1)
Quarter: 2024Q3

REPORT INFORMATION
  Report Type: Spontaneous
  Country: IE (occurrence: IE)
  Receive Date: 20240903
  Receipt Date: 20240903
  Transmission Date: 20241017
  Serious: Yes (Other)
  Sender: ROCHE
  Company Number: IE-ROCHE-10000034923

PATIENT
  Sex: Female

DRUGS (5)
  1. OCREVUS [Suspect]
     Active Substance: OCRELIZUMAB
     Indication: Multiple sclerosis
     Dosage: IN JULY 2023 SHE HAD A DOSE OF OCRELIZUMAB (2 INFUSIONS), IN DECEMBER 2023 (1 INFUSION) AND JULY 202
     Route: 065
  2. TRILEPTAL [Concomitant]
     Active Substance: OXCARBAZEPINE
  3. BACLOFEN [Concomitant]
     Active Substance: BACLOFEN
  4. EPILIM [Concomitant]
     Active Substance: VALPROATE SODIUM
  5. LYRICA [Concomitant]
     Active Substance: PREGABALIN

REACTIONS (1)
  - Trigeminal neuralgia [Recovered/Resolved with Sequelae]
